FAERS Safety Report 5561091-8 (Version None)
Quarter: 2007Q4

REPORT INFORMATION
  Report Type: 
  Country: None (occurrence: None)
  Receive Date: 20071215
  Receipt Date: 20071031
  Transmission Date: 20080405
  Serious: No
  Sender: FDA-Public Use
  Company Number: US-AMGEN-KDL250544

PATIENT
  Sex: Female

DRUGS (3)
  1. ENBREL [Suspect]
     Indication: CROHN'S DISEASE
     Route: 058
     Dates: start: 20070701
  2. ENBREL [Suspect]
     Indication: SERONEGATIVE ARTHRITIS
  3. ENBREL [Suspect]
     Indication: VASCULITIS

REACTIONS (2)
  - ARTHRALGIA [None]
  - MUSCULOSKELETAL PAIN [None]
